FAERS Safety Report 9592415 (Version 1)
Quarter: 2013Q4

REPORT INFORMATION
  Report Type: Spontaneous
  Country: US (occurrence: None)
  Receive Date: 20131003
  Receipt Date: 20131003
  Transmission Date: 20140711
  Serious: Yes (Hospitalization, Disabling)
  Sender: FDA-Public Use
  Company Number: None

PATIENT
  Age: 26 Year
  Sex: Male
  Weight: 68 kg

DRUGS (1)
  1. LEVOFLOXACIN [Suspect]
     Route: 048
     Dates: start: 20130831, end: 20130901

REACTIONS (9)
  - Burning sensation [None]
  - Pain [None]
  - Muscle spasms [None]
  - Tendon rupture [None]
  - Hypotonia [None]
  - Dizziness [None]
  - Dizziness [None]
  - Gait disturbance [None]
  - Abdominal discomfort [None]
